FAERS Safety Report 5488397-5 (Version None)
Quarter: 2007Q3

REPORT INFORMATION
  Report Type: 
  Country: None (occurrence: None)
  Receive Date: 20070927
  Receipt Date: 20070430
  Transmission Date: 20080115
  Serious: No
  Sender: FDA-Public Use
  Company Number: US-CVT-070104

PATIENT
  Age: 51 Year
  Sex: Male

DRUGS (7)
  1. RANEXA [Suspect]
     Indication: ANGINA PECTORIS
     Dosage: 500 MG, BID, ORAL
     Route: 048
     Dates: start: 20070428, end: 20070428
  2. NORVASC [Concomitant]
  3. VYTORIN [Concomitant]
  4. LOTENSIL (BENAZEPRIL HYDROCHLORIDE) [Concomitant]
  5. PLAVIX [Concomitant]
  6. CORGARD [Concomitant]
  7. ASPIRIN [Concomitant]

REACTIONS (3)
  - BURNING SENSATION [None]
  - DIZZINESS [None]
  - HEART RATE DECREASED [None]
